FAERS Safety Report 9162787 (Version 1)
Quarter: 2013Q1

REPORT INFORMATION
  Report Type: Spontaneous
  Country: GB (occurrence: None)
  Receive Date: 20130225
  Receipt Date: 20130225
  Transmission Date: 20140127
  Serious: Yes (Hospitalization, Other)
  Sender: FDA-Public Use
  Company Number: 2013P1002342

PATIENT
  Age: 77 Year
  Sex: Male

DRUGS (1)
  1. GENTAMICIN [Suspect]
     Indication: INFECTION PROPHYLAXIS
     Route: 017

REACTIONS (3)
  - Rectal haemorrhage [None]
  - Arterioenteric fistula [None]
  - Melaena [None]
